FAERS Safety Report 13569274 (Version 2)
Quarter: 2017Q3

REPORT INFORMATION
  Report Type: Report from Study
  Country: FR (occurrence: FR)
  Receive Date: 20170522
  Receipt Date: 20170720
  Transmission Date: 20171127
  Serious: Yes (Death, Hospitalization, Disabling, Other)
  Sender: FDA-Public Use
  Company Number: FR-BAYER-2016-055846

PATIENT
  Age: 54 Year
  Sex: Male
  Weight: 73 kg

DRUGS (1)
  1. STIVARGA [Suspect]
     Active Substance: REGORAFENIB
     Indication: COLORECTAL CANCER METASTATIC
     Dosage: 160 MG, UNK
     Dates: start: 20160114, end: 20160204

REACTIONS (4)
  - Proctalgia [Fatal]
  - Pain [Recovering/Resolving]
  - Haematuria [None]
  - Nephrostomy [Recovered/Resolved]

NARRATIVE: CASE EVENT DATE: 201601
